FAERS Safety Report 14687288 (Version 1)
Quarter: 2018Q1

REPORT INFORMATION
  Report Type: Spontaneous
  Country: US (occurrence: US)
  Receive Date: 20180328
  Receipt Date: 20180328
  Transmission Date: 20180509
  Serious: No
  Sender: FDA-Public Use
  Company Number: US-TEVA-2018-US-864344

PATIENT
  Sex: Female

DRUGS (1)
  1. LIDOCAINE. [Suspect]
     Active Substance: LIDOCAINE
     Indication: PAIN
     Route: 061
     Dates: start: 20180117

REACTIONS (2)
  - Application site erythema [Unknown]
  - Application site haemorrhage [Unknown]

NARRATIVE: CASE EVENT DATE: 20180117
